FAERS Safety Report 6961666-5 (Version None)
Quarter: 2010Q3

REPORT INFORMATION
  Report Type: 
  Country: None (occurrence: None)
  Receive Date: 20100901
  Receipt Date: 20100824
  Transmission Date: 20110219
  Serious: Yes (Other)
  Sender: FDA-Public Use
  Company Number: BR-ABBOTT-10P-020-0665670-00

PATIENT
  Sex: Female
  Weight: 58.5 kg

DRUGS (4)
  1. DEPAKOTE [Suspect]
     Indication: CONVULSION
     Route: 048
     Dates: start: 20090101
  2. DEPAKOTE [Suspect]
     Indication: PETIT MAL EPILEPSY
  3. PHENOBARBITAL [Concomitant]
     Indication: EPILEPSY
     Route: 048
     Dates: start: 20020101
  4. LEVOTHYROXINE SODIUM [Concomitant]
     Indication: HYPOTHYROIDISM
     Route: 048
     Dates: start: 20000101

REACTIONS (4)
  - CONVULSION [None]
  - HEMIPLEGIA [None]
  - PETIT MAL EPILEPSY [None]
  - VIITH NERVE PARALYSIS [None]
